FAERS Safety Report 10035973 (Version 1)
Quarter: 2014Q1

REPORT INFORMATION
  Report Type: Spontaneous
  Country: US (occurrence: US)
  Receive Date: 20140325
  Receipt Date: 20140325
  Transmission Date: 20141002
  Serious: Yes (Other)
  Sender: FDA-Public Use
  Company Number: US-PFIZER INC-2014081840

PATIENT
  Age: 62 Year
  Sex: Female
  Weight: 96 kg

DRUGS (3)
  1. LYRICA [Suspect]
     Indication: DEPRESSION
     Dosage: UNK
     Dates: start: 201101, end: 201102
  2. LYRICA [Suspect]
     Indication: PAIN
  3. HYDROCODONE [Concomitant]
     Indication: PAIN
     Dosage: 05/325 MG FOUR TIMES DAY

REACTIONS (5)
  - Homicidal ideation [Unknown]
  - Aggression [Unknown]
  - Depression [Unknown]
  - Anger [Unknown]
  - Pain [Unknown]
